FAERS Safety Report 10501342 (Version 1)
Quarter: 2014Q4

REPORT INFORMATION
  Report Type: Spontaneous
  Country: JP (occurrence: JP)
  Receive Date: 20141007
  Receipt Date: 20141007
  Transmission Date: 20150528
  Serious: Yes (Hospitalization)
  Sender: FDA-Public Use
  Company Number: JP-JNJFOC-20140926140

PATIENT
  Age: 84 Year
  Sex: Female

DRUGS (6)
  1. NORVASC [Concomitant]
     Active Substance: AMLODIPINE BESYLATE
     Route: 048
  2. XARELTO [Suspect]
     Active Substance: RIVAROXABAN
     Indication: CEREBROVASCULAR ACCIDENT PROPHYLAXIS
     Route: 048
     Dates: start: 20121201, end: 20140906
  3. PERDIPINE [Concomitant]
     Active Substance: NICARDIPINE HYDROCHLORIDE
     Route: 065
  4. RENIVACE [Concomitant]
     Active Substance: ENALAPRIL
     Route: 048
  5. ATELEC [Concomitant]
     Active Substance: CILNIDIPINE
     Route: 048
  6. DIOVAN [Concomitant]
     Active Substance: VALSARTAN
     Route: 048

REACTIONS (1)
  - Embolic stroke [Recovering/Resolving]

NARRATIVE: CASE EVENT DATE: 20140906
